FAERS Safety Report 13698549 (Version 1)
Quarter: 2017Q2

REPORT INFORMATION
  Report Type: Spontaneous
  Country: PH (occurrence: PH)
  Receive Date: 20170628
  Receipt Date: 20170628
  Transmission Date: 20170830
  Serious: Yes (Other)
  Sender: FDA-Public Use
  Company Number: PH-DEPOMED, INC.-PH-2017DEP001094

PATIENT

DRUGS (3)
  1. DICLOFENAC POTASSIUM. [Suspect]
     Active Substance: DICLOFENAC POTASSIUM
     Indication: ABDOMINAL PAIN
  2. VITAMIIN C [Concomitant]
     Active Substance: ASCORBIC ACID
     Indication: PRODUCT USED FOR UNKNOWN INDICATION
     Dosage: UNK
  3. DICLOFENAC POTASSIUM. [Suspect]
     Active Substance: DICLOFENAC POTASSIUM
     Indication: DYSMENORRHOEA
     Dosage: UNK
     Route: 065

REACTIONS (12)
  - Flushing [Unknown]
  - Skin lesion [Unknown]
  - Urticaria [Unknown]
  - Product use in unapproved indication [Unknown]
  - Rash pruritic [Recovered/Resolved]
  - Dehydration [Unknown]
  - Arthralgia [Unknown]
  - Malaise [Unknown]
  - Chills [Unknown]
  - Pain [Unknown]
  - Dyspnoea [Unknown]
  - Erythema [Unknown]
